FAERS Safety Report 9243613 (Version 1)
Quarter: 2013Q2

REPORT INFORMATION
  Report Type: Spontaneous
  Country: US (occurrence: US)
  Receive Date: 20130422
  Receipt Date: 20130422
  Transmission Date: 20140414
  Serious: Yes (Other)
  Sender: FDA-Public Use
  Company Number: US-AMGEN-USASP2013026865

PATIENT
  Age: 58 Year
  Sex: Female

DRUGS (14)
  1. NEULASTA [Suspect]
     Indication: PROPHYLAXIS
     Dosage: 6 MG, 24 HOURS AFTER CHEMOTHERAPY
     Dates: end: 200901
  2. PAXIL                              /00500401/ [Concomitant]
     Dosage: 20 MG, UNK
  3. XANAX [Concomitant]
     Dosage: 0.5 MG, UNK
  4. ASPIRIN LOW [Concomitant]
     Dosage: UNK, LOW DOSE
  5. ACYCLOVIR                          /00587301/ [Concomitant]
     Indication: CHRONIC LYMPHOCYTIC LEUKAEMIA
     Dosage: UNK
     Dates: start: 200807
  6. ACYCLOVIR                          /00587301/ [Concomitant]
     Indication: LYMPHOCYTIC LYMPHOMA
  7. COMPAZINE                          /00013302/ [Concomitant]
     Indication: CHRONIC LYMPHOCYTIC LEUKAEMIA
     Dosage: UNK
     Dates: start: 200807
  8. COMPAZINE                          /00013302/ [Concomitant]
     Indication: LYMPHOCYTIC LYMPHOMA
  9. RITUXAN [Concomitant]
     Indication: CHRONIC LYMPHOCYTIC LEUKAEMIA
     Dosage: UNK
     Dates: start: 200807
  10. RITUXAN [Concomitant]
     Indication: LYMPHOCYTIC LYMPHOMA
  11. FLUDARABINE [Concomitant]
     Indication: CHRONIC LYMPHOCYTIC LEUKAEMIA
     Dosage: UNK
     Dates: start: 200807
  12. FLUDARABINE [Concomitant]
     Indication: LYMPHOCYTIC LYMPHOMA
  13. CYTOXAN [Concomitant]
     Indication: CHRONIC LYMPHOCYTIC LEUKAEMIA
     Dosage: UNK
     Dates: start: 200807
  14. CYTOXAN [Concomitant]
     Indication: LYMPHOCYTIC LYMPHOMA

REACTIONS (2)
  - Activities of daily living impaired [Unknown]
  - Bone pain [Not Recovered/Not Resolved]
